FAERS Safety Report 13125159 (Version 4)
Quarter: 2017Q1

REPORT INFORMATION
  Report Type: Report from Study
  Country: US (occurrence: US)
  Receive Date: 20170118
  Receipt Date: 20170327
  Transmission Date: 20170428
  Serious: Yes (Other)
  Sender: FDA-Public Use
  Company Number: US-PFIZER INC-2016533993

PATIENT
  Age: 54 Year
  Sex: Male

DRUGS (1)
  1. SUTENT [Suspect]
     Active Substance: SUNITINIB MALATE
     Indication: PANCREATIC NEUROENDOCRINE TUMOUR
     Dosage: 37.5 MG, DAILY (AS PRESCRIBED)
     Route: 048
     Dates: start: 20161011

REACTIONS (15)
  - Blood iron decreased [Unknown]
  - Osteomyelitis [Unknown]
  - Osteonecrosis [Unknown]
  - Constipation [Unknown]
  - Oral bacterial infection [Unknown]
  - Pain in jaw [Unknown]
  - Decreased appetite [Unknown]
  - Fatigue [Recovering/Resolving]
  - Stomatitis [Recovering/Resolving]
  - Chromaturia [Unknown]
  - Lethargy [Unknown]
  - Bacterial infection [Unknown]
  - Weight decreased [Unknown]
  - Gingival recession [Unknown]
  - Sensitivity of teeth [Unknown]
